FAERS Safety Report 10860779 (Version 3)
Quarter: 2016Q1

REPORT INFORMATION
  Report Type: Report from Study
  Country: US (occurrence: US)
  Receive Date: 20150224
  Receipt Date: 20160229
  Transmission Date: 20160525
  Serious: Yes (Hospitalization, Other)
  Sender: FDA-Public Use
  Company Number: US-BEH-2015048976

PATIENT
  Age: 46 Year
  Sex: Female

DRUGS (18)
  1. CLONAZEPAM. [Concomitant]
     Active Substance: CLONAZEPAM
  2. PARICALCITOL. [Concomitant]
     Active Substance: PARICALCITOL
  3. CITALOPRAM HYDROBROMIDE. [Concomitant]
     Active Substance: CITALOPRAM HYDROBROMIDE
  4. PANTOPRAZOLE SODIUM. [Concomitant]
     Active Substance: PANTOPRAZOLE SODIUM
  5. PREDNISONE. [Concomitant]
     Active Substance: PREDNISONE
  6. TACROLIMUS. [Concomitant]
     Active Substance: TACROLIMUS
  7. LACTULOSE. [Concomitant]
     Active Substance: LACTULOSE
  8. ACETYLCYSTEINE. [Concomitant]
     Active Substance: ACETYLCYSTEINE
  9. SULFAMETHOXAZOLE/TRIMETHOPRIM [Concomitant]
     Active Substance: SULFAMETHOXAZOLE\TRIMETHOPRIM
  10. FUROSEMIDE. [Concomitant]
     Active Substance: FUROSEMIDE
  11. KLOR-CON [Concomitant]
     Active Substance: POTASSIUM CHLORIDE
  12. ZEMAIRA [Suspect]
     Active Substance: .ALPHA.1-PROTEINASE INHIBITOR HUMAN
     Indication: ALPHA-1 ANTI-TRYPSIN DEFICIENCY
     Dosage: STARTED ON 22-SEP-2015, 60 MG/KG (+/-10% DOSE = 5X945 =4725) (NOT TO EXCEED 0.08ML/KG/MIN)
     Route: 042
     Dates: end: 20151014
  13. LEVOTHYROXINE SODIUM. [Concomitant]
     Active Substance: LEVOTHYROXINE SODIUM
  14. TAMIFLU [Concomitant]
     Active Substance: OSELTAMIVIR PHOSPHATE
  15. GABAPENTIN. [Concomitant]
     Active Substance: GABAPENTIN
  16. ISONIAZID. [Concomitant]
     Active Substance: ISONIAZID
  17. MYCOPHENOLATE MOFETIL. [Concomitant]
     Active Substance: MYCOPHENOLATE MOFETIL
  18. HYDROMORPHONE HCL [Concomitant]
     Active Substance: HYDROMORPHONE HYDROCHLORIDE

REACTIONS (3)
  - Lung transplant [Unknown]
  - Lung transplant rejection [Unknown]
  - Cholecystectomy [Unknown]

NARRATIVE: CASE EVENT DATE: 20121119
